FAERS Safety Report 19216160 (Version 1)
Quarter: 2021Q2

REPORT INFORMATION
  Report Type: Other
  Country: US (occurrence: US)
  Receive Date: 20210505
  Receipt Date: 20210505
  Transmission Date: 20210717
  Serious: Yes (Other)
  Sender: FDA-Public Use
  Company Number: US-ROCHE-2819225

PATIENT
  Age: 64 Year
  Sex: Male
  Weight: 83.99 kg

DRUGS (1)
  1. OCREVUS [Suspect]
     Active Substance: OCRELIZUMAB
     Indication: SECONDARY PROGRESSIVE MULTIPLE SCLEROSIS
     Route: 042
     Dates: start: 2019

REACTIONS (6)
  - Pain [Unknown]
  - Haemorrhage [Unknown]
  - Prostatic abscess [Unknown]
  - Immobile [Not Recovered/Not Resolved]
  - Prostate infection [Unknown]
  - Urinary tract infection [Unknown]

NARRATIVE: CASE EVENT DATE: 202010
